FAERS Safety Report 16004728 (Version 1)
Quarter: 2019Q1

REPORT INFORMATION
  Report Type: Spontaneous
  Country: US (occurrence: US)
  Receive Date: 20190226
  Receipt Date: 20190226
  Transmission Date: 20190418
  Serious: No
  Sender: FDA-Public Use
  Company Number: US-GLAXOSMITHKLINE-US2019030281

PATIENT

DRUGS (1)
  1. LAMISIL [Suspect]
     Active Substance: TERBINAFINE HYDROCHLORIDE
     Indication: TINEA PEDIS
     Dosage: UNK

REACTIONS (3)
  - Tinea pedis [Unknown]
  - Peripheral swelling [Unknown]
  - Condition aggravated [Unknown]
